FAERS Safety Report 5746536-2 (Version None)
Quarter: 2008Q2

REPORT INFORMATION
  Report Type: 
  Country: None (occurrence: None)
  Receive Date: 20080522
  Receipt Date: 20071115
  Transmission Date: 20081010
  Serious: Yes (Other)
  Sender: FDA-Public Use
  Company Number: US-BRISTOL-MYERS SQUIBB COMPANY-13957071

PATIENT
  Age: 72 Year
  Sex: Female
  Weight: 57 kg

DRUGS (4)
  1. CYTOXAN [Suspect]
     Indication: BREAST CANCER
     Dates: start: 20070606, end: 20070806
  2. PROCRIT [Suspect]
     Indication: ANAEMIA OF MALIGNANT DISEASE
     Dosage: 13JUN07-06AUG07 (55DAYS) 40000 UNITS ONCE A WEEK AND 13AUG07-20AUG07 60000 UNITS ONCE A WEEK.
     Route: 058
     Dates: start: 20070813, end: 20070820
  3. RITUXAN [Suspect]
     Indication: BREAST CANCER
     Dates: start: 20070606, end: 20070806
  4. FLUDARA [Suspect]
     Indication: BREAST CANCER
     Dates: start: 20070606, end: 20070806

REACTIONS (3)
  - DRUG INEFFECTIVE [None]
  - DRUG SPECIFIC ANTIBODY ABSENT [None]
  - PANCYTOPENIA [None]
